FAERS Safety Report 23932514 (Version 1)
Quarter: 2024Q2

REPORT INFORMATION
  Report Type: Spontaneous
  Country: US (occurrence: None)
  Receive Date: 20240531
  Receipt Date: 20240531
  Transmission Date: 20240716
  Serious: Yes (Life-Threatening, Hospitalization)
  Sender: FDA-Public Use
  Company Number: None

PATIENT
  Age: 69 Year
  Sex: Male
  Weight: 78.8 kg

DRUGS (16)
  1. LENACAPAVIR [Suspect]
     Active Substance: LENACAPAVIR
     Indication: HIV infection
     Dosage: 927 MG/ML  EVERY 6 MONTHS SUBCUTANEOUS
     Route: 058
     Dates: start: 20230829
  2. ACETAMINOPHEN [Concomitant]
     Active Substance: ACETAMINOPHEN
  3. ALLOPURINOL [Concomitant]
  4. AMLODIPINE [Concomitant]
  5. Aspirin [Concomitant]
  6. ATORVASTATIN [Concomitant]
  7. Adderal IR [Concomitant]
  8. DOLUTEGRAVIR [Concomitant]
  9. DORAVIRINE [Concomitant]
  10. DESCOVY [Concomitant]
  11. FOSTEMSAVIR [Concomitant]
  12. Keotconzaole [Concomitant]
  13. LISINOPRIL [Concomitant]
     Active Substance: LISINOPRIL
  14. LOPERAMIDE [Concomitant]
     Active Substance: LOPERAMIDE
     Dates: start: 20240202
  15. NAPROXEN [Concomitant]
     Active Substance: NAPROXEN
  16. TESTOSTERONE [Concomitant]
     Active Substance: TESTOSTERONE
     Dates: start: 20240213

REACTIONS (2)
  - Acute myocardial infarction [None]
  - Atrial fibrillation [None]

NARRATIVE: CASE EVENT DATE: 20240314
